FAERS Safety Report 9717821 (Version 1)
Quarter: 2013Q4

REPORT INFORMATION
  Report Type: Spontaneous
  Country: US (occurrence: US)
  Receive Date: 20131125
  Receipt Date: 20131125
  Transmission Date: 20140711
  Serious: No
  Sender: FDA-Public Use
  Company Number: US-VIVUS-2012V1000244

PATIENT
  Age: 68 Year
  Sex: Male
  Weight: 105.78 kg

DRUGS (11)
  1. QSYMIA [Suspect]
     Indication: WEIGHT DECREASED
     Route: 048
     Dates: start: 20121002, end: 20121016
  2. QSYMIA [Suspect]
     Route: 048
     Dates: start: 20121016
  3. DOXAZOSIN [Concomitant]
     Indication: CARDIAC DISORDER
  4. DOXAZOSIN [Concomitant]
     Dates: start: 201210
  5. VENLAFAXINE XR [Concomitant]
     Indication: PERSONALITY DISORDER
  6. FOLIC [Concomitant]
     Indication: HYPOVITAMINOSIS
     Dosage: DAILY DOSE: 1 TABLET,
  7. ALPRAZOLAM [Concomitant]
     Indication: ANXIETY
  8. AVODART [Concomitant]
     Indication: BENIGN PROSTATIC HYPERPLASIA
  9. ALLOPURINOL [Concomitant]
     Indication: GOUT
  10. POTASSIUM CITRATE [Concomitant]
     Indication: RENAL DISORDER
     Dosage: DAILY DOSE: 2 TABLET,
  11. LOSARTAN HCT [Concomitant]
     Indication: BLOOD PRESSURE

REACTIONS (2)
  - Somnolence [Not Recovered/Not Resolved]
  - Dizziness [Not Recovered/Not Resolved]
